FAERS Safety Report 24143956 (Version 1)
Quarter: 2024Q3

REPORT INFORMATION
  Report Type: Spontaneous
  Country: GB (occurrence: GB)
  Receive Date: 20240727
  Receipt Date: 20240727
  Transmission Date: 20241017
  Serious: Yes (Hospitalization, Disabling, Other)
  Sender: ACCORD
  Company Number: None

PATIENT
  Age: 34 Year
  Sex: Female
  Weight: 59 kg

DRUGS (6)
  1. FLUOXETINE [Suspect]
     Active Substance: FLUOXETINE HYDROCHLORIDE
     Indication: Product used for unknown indication
     Dosage: 40 MG ONCE A DAY AT MORNING
  2. CANNABIDIOL [Concomitant]
     Active Substance: CANNABIDIOL
     Indication: Generalised anxiety disorder
  3. LORAZEPAM [Concomitant]
     Active Substance: LORAZEPAM
     Indication: Anxiety
  4. FAMOTIDINE [Concomitant]
     Active Substance: FAMOTIDINE
     Indication: Adverse drug reaction
  5. PANTOPRAZOLE [Concomitant]
     Active Substance: PANTOPRAZOLE
     Indication: Adverse drug reaction
  6. CANNABIS SATIVA FLOWERING TOP [Concomitant]
     Active Substance: CANNABIS SATIVA FLOWERING TOP
     Indication: Generalised anxiety disorder

REACTIONS (5)
  - Tremor [Not Recovered/Not Resolved]
  - Photophobia [Not Recovered/Not Resolved]
  - Diplopia [Recovered/Resolved with Sequelae]
  - Vertigo [Not Recovered/Not Resolved]
  - Dizziness [Not Recovered/Not Resolved]

NARRATIVE: CASE EVENT DATE: 20240101
